FAERS Safety Report 10376619 (Version 1)
Quarter: 2014Q3

REPORT INFORMATION
  Report Type: Spontaneous
  Country: US (occurrence: None)
  Receive Date: 20140807
  Receipt Date: 20140807
  Transmission Date: 20150326
  Serious: Yes (Life-Threatening, Hospitalization)
  Sender: FDA-Public Use
  Company Number: USW201407-000170

PATIENT
  Age: 72 Year
  Sex: Male
  Weight: 74.84 kg

DRUGS (1)
  1. APOKYN [Suspect]
     Active Substance: APOMORPHINE HYDROCHLORIDE
     Indication: PARKINSON^S DISEASE
     Dosage: 0.2 ML, ONCE, SITE: UPPER OUTER ARM, SUBCUTANEOUS
     Route: 058
     Dates: start: 20140721, end: 20140721

REACTIONS (5)
  - Pallor [None]
  - Dizziness [None]
  - Loss of consciousness [None]
  - Hyperhidrosis [None]
  - Syncope [None]

NARRATIVE: CASE EVENT DATE: 20140721
